FAERS Safety Report 18946815 (Version 1)
Quarter: 2021Q1

REPORT INFORMATION
  Report Type: Spontaneous
  Country: US (occurrence: US)
  Receive Date: 20210226
  Receipt Date: 20210226
  Transmission Date: 20210420
  Serious: Yes (Other)
  Sender: FDA-Public Use
  Company Number: US-BAYER-2021-082518

PATIENT
  Sex: Female
  Weight: 94.35 kg

DRUGS (1)
  1. ASPIRIN (PAIN AND FEVER) [Suspect]
     Active Substance: ASPIRIN

REACTIONS (4)
  - Swelling face [None]
  - Drug hypersensitivity [None]
  - Anaphylactic reaction [None]
  - Lip swelling [None]

NARRATIVE: CASE EVENT DATE: 1986
